FAERS Safety Report 16796566 (Version 1)
Quarter: 2019Q3

REPORT INFORMATION
  Report Type: Spontaneous
  Country: FR (occurrence: FR)
  Receive Date: 20190911
  Receipt Date: 20190911
  Transmission Date: 20191005
  Serious: Yes (Hospitalization)
  Sender: FDA-Public Use
  Company Number: FR-ALLERGAN-1936653US

PATIENT
  Sex: Female

DRUGS (9)
  1. TRULICITY [Suspect]
     Active Substance: DULAGLUTIDE
     Indication: DIABETES MELLITUS
     Dosage: 1.5 MG
     Dates: start: 2019
  2. CRESTOR [Concomitant]
     Active Substance: ROSUVASTATIN CALCIUM
     Dosage: 5 MG
  3. GLUCOPHAGE [Concomitant]
     Active Substance: METFORMIN HYDROCHLORIDE
     Dosage: 1 DF, TID
  4. AMLOR [Concomitant]
     Active Substance: AMLODIPINE BESYLATE
     Dosage: 10 MG
  5. DETENSIEL [Concomitant]
     Active Substance: BISOPROLOL FUMARATE
     Dosage: 10 MG
  6. FOSFOMYCIN TROMETHAMINE - BP [Suspect]
     Active Substance: FOSFOMYCIN TROMETHAMINE
     Indication: CYSTITIS
     Dosage: UNK
     Dates: start: 201907, end: 201907
  7. KARDEGIC [Concomitant]
     Active Substance: ASPIRIN DL-LYSINE
     Dosage: 75 MG
  8. PERINDOPRIL [Concomitant]
     Active Substance: PERINDOPRIL
     Dosage: 4 MG
  9. ZEBINIX [Concomitant]
     Active Substance: ESLICARBAZEPINE ACETATE
     Dosage: 1 DF, QD, EACH EVENING

REACTIONS (5)
  - Malaise [Unknown]
  - Diarrhoea [Unknown]
  - Cystitis [Recovered/Resolved]
  - Dehydration [Unknown]
  - Abdominal discomfort [Unknown]

NARRATIVE: CASE EVENT DATE: 201907
